FAERS Safety Report 4914238-8 (Version None)
Quarter: 2006Q1

REPORT INFORMATION
  Report Type: 
  Country: None (occurrence: None)
  Receive Date: 20060113
  Receipt Date: 20051111
  Transmission Date: 20060701
  Serious: No
  Sender: FDA-Public Use
  Company Number: 2005SP003944

PATIENT
  Age: 80 Year
  Sex: Female
  Weight: 81.6475 kg

DRUGS (6)
  1. LUNESTA [Suspect]
     Indication: INITIAL INSOMNIA
     Dosage: 2 MG; HS; ORAL
     Route: 048
     Dates: start: 20051001
  2. HYDROXYZINE [Concomitant]
  3. MULTIVITAMIN [Concomitant]
  4. PRILOSEC [Concomitant]
  5. BLOOD THINNER NOS [Concomitant]
  6. GLUCOSAMINE [Concomitant]

REACTIONS (2)
  - DRUG INEFFECTIVE [None]
  - INITIAL INSOMNIA [None]
